FAERS Safety Report 7830930-X (Version None)
Quarter: 2011Q4

REPORT INFORMATION
  Report Type: 
  Country: None (occurrence: None)
  Receive Date: 20111021
  Receipt Date: 20111013
  Transmission Date: 20120403
  Serious: Yes (Hospitalization, Other)
  Sender: FDA-Public Use
  Company Number: BR-PFIZER INC-2011230788

PATIENT
  Age: 56 Year
  Sex: Female
  Weight: 73 kg

DRUGS (6)
  1. SIMVASTATIN [Concomitant]
     Indication: BLOOD CHOLESTEROL INCREASED
     Dosage: 20 MG, 1X/DAY AT NIGHT
     Dates: start: 20090101
  2. VENLAFAXINE [Concomitant]
     Indication: DEPRESSIVE SYMPTOM
     Dosage: 70 MG, 1X/DAY IN THE MORNING
     Dates: start: 20110201
  3. VARENICLINE TARTRATE [Suspect]
     Dosage: 1 MG, 2X/DAY
     Route: 048
     Dates: start: 20110901, end: 20111005
  4. VARENICLINE TARTRATE [Suspect]
     Indication: SMOKING CESSATION THERAPY
     Dosage: UNK
     Route: 048
     Dates: start: 20110910, end: 20110901
  5. ALPRAZOLAM [Concomitant]
     Dosage: 0.125 MG, 1X/DAY
  6. VALERIAN EXTRACT [Concomitant]
     Dosage: 150 MG, 1X/DAY AT NIGHT
     Dates: start: 20110501

REACTIONS (8)
  - INSOMNIA [None]
  - BLOOD PRESSURE INCREASED [None]
  - GASTROINTESTINAL PAIN [None]
  - VOMITING [None]
  - INTESTINAL DILATATION [None]
  - ABDOMINAL PAIN [None]
  - NAUSEA [None]
  - ABDOMINAL DISTENSION [None]
